FAERS Safety Report 17671609 (Version 1)
Quarter: 2020Q2

REPORT INFORMATION
  Report Type: Report from Study
  Country: CA (occurrence: CA)
  Receive Date: 20200415
  Receipt Date: 20200415
  Transmission Date: 20200713
  Serious: Yes (Other)
  Sender: FDA-Public Use
  Company Number: CA-PFIZER INC-2020152970

PATIENT
  Sex: Male

DRUGS (2)
  1. METHOTREXATE SODIUM. [Suspect]
     Active Substance: METHOTREXATE SODIUM
  2. CICLOSPORIN [Suspect]
     Active Substance: CYCLOSPORINE

REACTIONS (3)
  - Liver function test increased [Unknown]
  - C-reactive protein increased [Unknown]
  - Drug ineffective [Unknown]
